FAERS Safety Report 9934221 (Version 1)
Quarter: 2014Q1

REPORT INFORMATION
  Report Type: Spontaneous
  Country: US (occurrence: None)
  Receive Date: 20140228
  Receipt Date: 20140228
  Transmission Date: 20141002
  Serious: Yes (Life-Threatening, Hospitalization, Disabling)
  Sender: FDA-Public Use
  Company Number: None

PATIENT
  Age: 69 Year
  Sex: Male
  Weight: 88.91 kg

DRUGS (1)
  1. TESTOST /CH CHRYSIN [Suspect]
     Indication: BLOOD TESTOSTERONE DECREASED
     Dates: start: 20101025, end: 20120425

REACTIONS (3)
  - Product compounding quality issue [None]
  - Deep vein thrombosis [None]
  - Pulmonary embolism [None]
